FAERS Safety Report 5264858-9 (Version None)
Quarter: 2007Q1

REPORT INFORMATION
  Report Type: 
  Country: None (occurrence: None)
  Receive Date: 20070314
  Receipt Date: 20070307
  Transmission Date: 20070707
  Serious: Yes (Hospitalization, Other)
  Sender: FDA-Public Use
  Company Number: 2006PK00661

PATIENT
  Age: 17752 Day
  Sex: Female
  Weight: 50 kg

DRUGS (2)
  1. ARIMIDEX [Suspect]
     Route: 048
     Dates: start: 20041012
  2. ZOLADEX [Suspect]
     Indication: BREAST CANCER FEMALE
     Route: 058
     Dates: start: 20041012, end: 20051122

REACTIONS (2)
  - LOCAL REACTION [None]
  - SALPINGO-OOPHORECTOMY BILATERAL [None]
